FAERS Safety Report 9753020 (Version 1)
Quarter: 2013Q4

REPORT INFORMATION
  Report Type: Spontaneous
  Country: GB (occurrence: GB)
  Receive Date: 20131213
  Receipt Date: 20131213
  Transmission Date: 20140711
  Serious: Yes (Life-Threatening)
  Sender: FDA-Public Use
  Company Number: GB-TEVA-449736ISR

PATIENT
  Sex: Female
  Weight: 95.71 kg

DRUGS (3)
  1. NAPROXEN [Suspect]
  2. CHLORPHENAMINE [Concomitant]
     Dates: start: 20130812, end: 20130826
  3. FLUCLOXACILLIN [Concomitant]
     Dates: start: 20130815, end: 20130822

REACTIONS (2)
  - Mouth ulceration [Not Recovered/Not Resolved]
  - Stevens-Johnson syndrome [Unknown]
